FAERS Safety Report 8045919-8 (Version None)
Quarter: 2012Q1

REPORT INFORMATION
  Report Type: 
  Country: None (occurrence: None)
  Receive Date: 20120113
  Receipt Date: 20111209
  Transmission Date: 20120608
  Serious: Yes (Hospitalization)
  Sender: FDA-Public Use
  Company Number: JP-GLAXOSMITHKLINE-B0768710A

PATIENT
  Sex: Female

DRUGS (4)
  1. PAXIL [Concomitant]
     Indication: BIPOLAR I DISORDER
     Dosage: 10MG PER DAY
     Route: 048
     Dates: start: 20110914
  2. CHINESE MEDICINE [Concomitant]
     Route: 048
  3. LAMICTAL [Suspect]
     Indication: BIPOLAR DISORDER
     Dosage: 100MG PER DAY
     Route: 048
     Dates: start: 20111019, end: 20111104
  4. DEPAKENE [Suspect]
     Indication: BIPOLAR DISORDER
     Route: 048
     Dates: end: 20111031

REACTIONS (7)
  - DIZZINESS [None]
  - GENERALISED ERYTHEMA [None]
  - MANIA [None]
  - PNEUMONIA [None]
  - DRUG ERUPTION [None]
  - DIABETES MELLITUS [None]
  - DRUG INTERACTION [None]
